FAERS Safety Report 9264203 (Version 1)
Quarter: 2013Q2

REPORT INFORMATION
  Report Type: Spontaneous
  Country: US (occurrence: US)
  Receive Date: 20130430
  Receipt Date: 20130430
  Transmission Date: 20140414
  Serious: No
  Sender: FDA-Public Use
  Company Number: US-ASTRAZENECA-2013SE25710

PATIENT
  Sex: Female

DRUGS (1)
  1. PULMICORT FLEXHALER [Suspect]
     Indication: BRONCHITIS
     Dosage: 180 MCG, TWO PUFFS TWO TIMES A DAY
     Route: 055

REACTIONS (6)
  - Pulmonary congestion [Not Recovered/Not Resolved]
  - Cough [Not Recovered/Not Resolved]
  - Oropharyngeal pain [Not Recovered/Not Resolved]
  - Dysphonia [Not Recovered/Not Resolved]
  - Dry throat [Not Recovered/Not Resolved]
  - Off label use [Not Recovered/Not Resolved]
